FAERS Safety Report 15170931 (Version 9)
Quarter: 2019Q4

REPORT INFORMATION
  Report Type: Spontaneous
  Country: US (occurrence: US)
  Receive Date: 20180720
  Receipt Date: 20191204
  Transmission Date: 20200122
  Serious: No
  Sender: FDA-Public Use
  Company Number: US-SA-2018SA194843

PATIENT
  Age: 70 Year
  Sex: Female

DRUGS (2)
  1. KEVZARA [Suspect]
     Active Substance: SARILUMAB
     Indication: RHEUMATOID ARTHRITIS
     Dosage: 200 MG, QOW
     Route: 058
     Dates: start: 20180214
  2. KEVZARA [Suspect]
     Active Substance: SARILUMAB
     Dosage: 200 MG, QOW
     Route: 058

REACTIONS (12)
  - Peripheral swelling [Unknown]
  - Viral infection [Unknown]
  - Unevaluable event [Unknown]
  - Fall [Unknown]
  - Rash [Recovering/Resolving]
  - Herpes zoster [Unknown]
  - Nasopharyngitis [Unknown]
  - Condition aggravated [Unknown]
  - Erythema [Unknown]
  - Malaise [Unknown]
  - Eczema [Unknown]
  - Rash [Unknown]

NARRATIVE: CASE EVENT DATE: 2018
